FAERS Safety Report 19711576 (Version 1)
Quarter: 2021Q3

REPORT INFORMATION
  Report Type: Spontaneous
  Country: CA (occurrence: CA)
  Receive Date: 20210816
  Receipt Date: 20210816
  Transmission Date: 20211014
  Serious: Yes (Death)
  Sender: FDA-Public Use
  Company Number: CA-PFIZER INC-202101012264

PATIENT
  Age: 29 Year
  Sex: Male
  Weight: 122 kg

DRUGS (8)
  1. OLANZAPINE. [Suspect]
     Active Substance: OLANZAPINE
     Dosage: UNK
  2. ALCOHOL. [Suspect]
     Active Substance: ALCOHOL
     Dosage: UNK
  3. NALOXONE [Suspect]
     Active Substance: NALOXONE
     Dosage: UNK
  4. COCAINE [Suspect]
     Active Substance: COCAINE
     Dosage: UNK
  5. GABAPENTIN. [Suspect]
     Active Substance: GABAPENTIN
     Dosage: UNK
  6. FENTANYL. [Suspect]
     Active Substance: FENTANYL
     Dosage: UNK
  7. METHAMPHETAMINE [METAMFETAMINE] [Suspect]
     Active Substance: METHAMPHETAMINE
     Dosage: UNK
  8. CODEINE [Suspect]
     Active Substance: CODEINE
     Dosage: UNK

REACTIONS (4)
  - Postmortem blood drug level [Fatal]
  - Amphetamines positive [Fatal]
  - Opiates positive [Fatal]
  - Blood ethanol [Fatal]
